FAERS Safety Report 9988133 (Version 1)
Quarter: 2014Q1

REPORT INFORMATION
  Report Type: Spontaneous
  Country: FR (occurrence: FR)
  Receive Date: 20140308
  Receipt Date: 20140308
  Transmission Date: 20141002
  Serious: Yes (Other)
  Sender: FDA-Public Use
  Company Number: FR-ASTRAZENECA-2014SE15447

PATIENT
  Age: 5 Year
  Sex: Male

DRUGS (1)
  1. EMLA PATCH [Suspect]
     Route: 003
     Dates: start: 2010, end: 2010

REACTIONS (1)
  - Application site vesicles [Recovered/Resolved]
